FAERS Safety Report 7406048-7 (Version None)
Quarter: 2011Q2

REPORT INFORMATION
  Report Type: 
  Country: None (occurrence: None)
  Receive Date: 20110411
  Receipt Date: 20110331
  Transmission Date: 20111010
  Serious: Yes (Death)
  Sender: FDA-Public Use
  Company Number: B0696192A

PATIENT
  Sex: Male
  Weight: 59 kg

DRUGS (32)
  1. NEO-MINOPHAGEN-C [Concomitant]
     Dosage: 60ML PER DAY
     Route: 042
     Dates: start: 20100823, end: 20100901
  2. ADONA (AC-17) [Concomitant]
     Dosage: 20ML PER DAY
     Dates: start: 20100828, end: 20100828
  3. FLURBIPROFEN [Concomitant]
     Dosage: 15ML PER DAY
     Route: 042
     Dates: start: 20100823, end: 20100901
  4. UNKNOWN MEDICATION [Concomitant]
     Dosage: 2ML PER DAY
     Route: 042
     Dates: start: 20100823, end: 20100901
  5. SOLCOSERYL [Concomitant]
     Dosage: 4ML PER DAY
     Dates: start: 20100823, end: 20100901
  6. REMINARON [Concomitant]
     Dosage: 600MG PER DAY
     Route: 042
     Dates: start: 20100823, end: 20100828
  7. SOL-MELCORT [Concomitant]
     Dosage: 125MG PER DAY
     Route: 042
     Dates: start: 20100829, end: 20100831
  8. MEYLON [Concomitant]
     Dosage: 80ML PER DAY
     Route: 042
     Dates: start: 20100827, end: 20100831
  9. DIAZEPAM [Concomitant]
     Dosage: 20MG PER DAY
     Dates: start: 20100829, end: 20100829
  10. DORMICUM [Concomitant]
     Dosage: 2ML PER DAY
     Dates: start: 20100901, end: 20100901
  11. THYMOGLOBULIN [Suspect]
     Indication: CORD BLOOD TRANSPLANT THERAPY
     Dosage: 1MGK PER DAY
     Route: 042
     Dates: start: 20100829, end: 20100831
  12. HUMULIN R [Concomitant]
     Dosage: 20ML PER DAY
     Dates: start: 20100828, end: 20100901
  13. SOLU-CORTEF [Concomitant]
     Dosage: 200G PER DAY
     Route: 042
     Dates: start: 20100827, end: 20100901
  14. RECOMODULIN [Concomitant]
     Dosage: 1.5IUAX PER DAY
     Route: 042
     Dates: start: 20100831, end: 20100901
  15. SERENACE [Concomitant]
     Dosage: 12.5MG PER DAY
     Dates: start: 20100901, end: 20100901
  16. HAPTOGLOBIN [Concomitant]
     Dosage: 1IUAX PER DAY
     Route: 042
     Dates: start: 20100901, end: 20100901
  17. MORPHINE HYDROCHLORIDE [Concomitant]
     Dosage: 15ML PER DAY
     Dates: start: 20100901, end: 20100901
  18. BETAMETASONE [Concomitant]
     Dosage: .2IUAX PER DAY
     Dates: start: 20100901, end: 20100901
  19. ALKERAN [Suspect]
     Indication: CORD BLOOD TRANSPLANT THERAPY
     Dosage: 80MGM2 PER DAY
     Route: 042
     Dates: start: 20100828, end: 20100828
  20. TACROLIMUS HYDRATE [Concomitant]
     Indication: IMMUNOSUPPRESSION
     Dosage: 1.5MG PER DAY
     Route: 065
     Dates: start: 20100831, end: 20100901
  21. FUNGUARD [Concomitant]
     Dosage: 150MG PER DAY
     Route: 042
     Dates: start: 20100823, end: 20100901
  22. ADELAVIN [Concomitant]
     Dosage: 2ML PER DAY
     Dates: start: 20100823, end: 20100901
  23. SODIUM CHLORIDE [Concomitant]
     Dosage: 20ML PER DAY
     Route: 042
     Dates: start: 20100823, end: 20100901
  24. ZOSYN [Concomitant]
     Dosage: 13.5G PER DAY
     Route: 042
     Dates: start: 20100827, end: 20100901
  25. FLUDARA [Suspect]
     Indication: CORD BLOOD TRANSPLANT THERAPY
     Dosage: 25MGM2 PER DAY
     Route: 042
     Dates: start: 20100823, end: 20100827
  26. THROMBIN LOCAL SOLUTION [Concomitant]
     Dosage: 10IU3 PER DAY
     Route: 048
     Dates: start: 20100831, end: 20100831
  27. GRANISETRON HCL [Concomitant]
     Dosage: 100ML PER DAY
     Route: 042
     Dates: start: 20100823, end: 20100828
  28. POLARAMINE [Concomitant]
     Dosage: 1IUAX PER DAY
     Dates: start: 20100829, end: 20100831
  29. POTASSIUM CHLORIDE [Concomitant]
     Dosage: 20ML PER DAY
     Route: 042
     Dates: start: 20100901, end: 20100901
  30. ATARAX [Concomitant]
     Dosage: 1ML PER DAY
     Dates: start: 20100901, end: 20100901
  31. ACIROVEC [Concomitant]
     Dosage: 750MG PER DAY
     Route: 042
     Dates: start: 20100823, end: 20100901
  32. MIRACLID [Concomitant]
     Dosage: 2ML PER DAY
     Route: 042
     Dates: start: 20100824, end: 20100901

REACTIONS (6)
  - C-REACTIVE PROTEIN INCREASED [None]
  - BLOOD ALBUMIN DECREASED [None]
  - PROTEIN TOTAL DECREASED [None]
  - CARDIAC FAILURE [None]
  - HEPATIC FAILURE [None]
  - SEPSIS [None]
